FAERS Safety Report 22282761 (Version 1)
Quarter: 2023Q2

REPORT INFORMATION
  Report Type: Spontaneous
  Country: AT (occurrence: AT)
  Receive Date: 20230504
  Receipt Date: 20230504
  Transmission Date: 20230722
  Serious: Yes (Other)
  Sender: FDA-Public Use
  Company Number: None

PATIENT

DRUGS (1)
  1. FLUTICASONE FUROATE\VILANTEROL TRIFENATATE [Suspect]
     Active Substance: FLUTICASONE FUROATE\VILANTEROL TRIFENATATE
     Indication: Product used for unknown indication
     Dosage: UNK
     Route: 055

REACTIONS (5)
  - Supraventricular tachycardia [Recovered/Resolved]
  - Palpitations [Recovered/Resolved]
  - Tremor [Recovered/Resolved]
  - Restlessness [Recovered/Resolved]
  - Extrasystoles [Recovered/Resolved]

NARRATIVE: CASE EVENT DATE: 20230426
